FAERS Safety Report 11379543 (Version 1)
Quarter: 2015Q3

REPORT INFORMATION
  Report Type: Spontaneous
  Country: US (occurrence: None)
  Receive Date: 20150813
  Receipt Date: 20150813
  Transmission Date: 20151125
  Serious: Yes (Life-Threatening, Hospitalization, Disabling, Other)
  Sender: FDA-Public Use
  Company Number: None

PATIENT
  Age: 43 Year
  Sex: Female
  Weight: 68.04 kg

DRUGS (2)
  1. LUPRON DEPOT [Suspect]
     Active Substance: LEUPROLIDE ACETATE
     Indication: ADENOMYOSIS
     Route: 030
  2. MULTIPLE [Concomitant]

REACTIONS (8)
  - Ataxia [None]
  - Fall [None]
  - Psoriasis [None]
  - Blood pressure increased [None]
  - Arthritis [None]
  - Seizure [None]
  - Motor dysfunction [None]
  - Weight increased [None]

NARRATIVE: CASE EVENT DATE: 20141006
